FAERS Safety Report 10783601 (Version 1)
Quarter: 2015Q1

REPORT INFORMATION
  Report Type: Report from Study
  Country: US (occurrence: US)
  Receive Date: 20150210
  Receipt Date: 20150210
  Transmission Date: 20150721
  Serious: Yes (Death, Hospitalization)
  Sender: FDA-Public Use
  Company Number: US-TEVA-525282USA

PATIENT
  Age: 60 Year
  Sex: Female

DRUGS (1)
  1. CLOZAPINE. [Suspect]
     Active Substance: CLOZAPINE
     Indication: SCHIZOAFFECTIVE DISORDER
     Route: 048

REACTIONS (7)
  - Small intestinal obstruction [Recovered/Resolved]
  - Aspiration [Fatal]
  - Cardiac arrest [Fatal]
  - Chronic kidney disease [Unknown]
  - Pancreatitis [Unknown]
  - Acute kidney injury [Unknown]
  - Constipation [Unknown]

NARRATIVE: CASE EVENT DATE: 201411
